FAERS Safety Report 8124343-3 (Version None)
Quarter: 2012Q1

REPORT INFORMATION
  Report Type: 
  Country: None (occurrence: None)
  Receive Date: 20120209
  Receipt Date: 20120201
  Transmission Date: 20120608
  Serious: Yes (Other)
  Sender: FDA-Public Use
  Company Number: JP-GENZYME-THYM-1002579

PATIENT
  Age: 26 Year
  Sex: Female
  Weight: 42 kg

DRUGS (1)
  1. THYMOGLOBULIN [Suspect]
     Indication: KIDNEY TRANSPLANT REJECTION
     Dosage: 60 MG, QD
     Route: 042
     Dates: start: 20110622, end: 20110628

REACTIONS (1)
  - PANCYTOPENIA [None]
